FAERS Safety Report 7661686-1 (Version None)
Quarter: 2011Q3

REPORT INFORMATION
  Report Type: 
  Country: None (occurrence: None)
  Receive Date: 20110805
  Receipt Date: 20101012
  Transmission Date: 20111222
  Serious: No
  Sender: FDA-Public Use
  Company Number: US-ABBOTT-10P-163-0678002-00

PATIENT
  Sex: Male
  Weight: 87.168 kg

DRUGS (13)
  1. GLIMEPIRIDE [Concomitant]
     Indication: DIABETES MELLITUS
  2. JANUVIA [Concomitant]
     Indication: DIABETES MELLITUS
  3. METFORMIN HCL [Concomitant]
     Indication: DIABETES MELLITUS
  4. SIMVASTATIN [Concomitant]
     Indication: BLOOD CHOLESTEROL
  5. NIASPAN [Suspect]
     Dates: start: 20101010
  6. ACTOS [Concomitant]
     Indication: DIABETES MELLITUS
  7. ATENOLOL [Concomitant]
     Indication: BLOOD PRESSURE
  8. LISINOPRIL [Concomitant]
     Indication: BLOOD PRESSURE
  9. ASPIRIN [Concomitant]
     Indication: PRODUCT USED FOR UNKNOWN INDICATION
  10. PRILOSEC [Concomitant]
     Indication: GASTROOESOPHAGEAL REFLUX DISEASE
  11. FINASTERIDE [Concomitant]
     Indication: PROSTATIC DISORDER
  12. NIASPAN [Suspect]
     Indication: BLOOD CHOLESTEROL
  13. M.V.I. [Concomitant]
     Indication: PRODUCT USED FOR UNKNOWN INDICATION

REACTIONS (2)
  - PARAESTHESIA [None]
  - BURNING SENSATION [None]
